FAERS Safety Report 5893896-8 (Version None)
Quarter: 2008Q3

REPORT INFORMATION
  Report Type: 
  Country: None (occurrence: None)
  Receive Date: 20080923
  Receipt Date: 20080124
  Transmission Date: 20090109
  Serious: No
  Sender: FDA-Public Use
  Company Number: US-ASTRAZENECA-2007UW27653

PATIENT
  Age: 75 Year
  Sex: Female
  Weight: 99.8 kg

DRUGS (10)
  1. SEROQUEL [Suspect]
     Indication: AFFECTIVE DISORDER
     Route: 048
     Dates: start: 20041201
  2. SEROQUEL [Suspect]
     Indication: PSYCHOTIC DISORDER
     Route: 048
     Dates: start: 20041201
  3. LISINOPRIL [Concomitant]
     Indication: HYPERTENSION
     Route: 048
     Dates: start: 20050707
  4. ZOCOR [Concomitant]
     Indication: HYPERCHOLESTEROLAEMIA
     Route: 048
     Dates: start: 20030101
  5. HYDROXYZINE [Concomitant]
     Route: 048
     Dates: start: 20050101, end: 20071201
  6. BOLTERON [Concomitant]
  7. EFFEXOR XR [Concomitant]
     Indication: DEPRESSION
     Route: 048
     Dates: start: 20050101
  8. PRILOSEC [Concomitant]
     Indication: GASTROOESOPHAGEAL REFLUX DISEASE
     Route: 048
     Dates: start: 20060101
  9. DARVOCET-N 100 [Concomitant]
     Indication: OSTEOARTHRITIS
     Route: 048
  10. ASPIRIN [Concomitant]
     Dates: start: 20080116

REACTIONS (5)
  - APPETITE DISORDER [None]
  - BLOOD GLUCOSE INCREASED [None]
  - THIRST [None]
  - TYPE 2 DIABETES MELLITUS [None]
  - WEIGHT DECREASED [None]
